FAERS Safety Report 11544277 (Version 2)
Quarter: 2016Q2

REPORT INFORMATION
  Report Type: Spontaneous
  Country: AU (occurrence: AU)
  Receive Date: 20150924
  Receipt Date: 20160607
  Transmission Date: 20160815
  Serious: Yes (Life-Threatening, Hospitalization)
  Sender: FDA-Public Use
  Company Number: AU-HOSPIRA-3013862

PATIENT
  Age: 68 Year
  Sex: Male

DRUGS (6)
  1. METARAMINOL [Suspect]
     Active Substance: METARAMINOL
     Indication: HYPOTENSION
     Dosage: UNK
     Route: 040
  2. HEPARIN SODIUM. [Suspect]
     Active Substance: HEPARIN SODIUM
     Indication: ARTERIOSPASM CORONARY
     Dosage: 1000 IU, UNK
  3. NOREPINEPHRINE /00127502/ [Suspect]
     Active Substance: NOREPINEPHRINE BITARTRATE
     Indication: HYPOTENSION
     Dosage: 10UG/MIN
     Route: 041
  4. NOREPINEPHRINE /00127502/ [Suspect]
     Active Substance: NOREPINEPHRINE BITARTRATE
     Indication: RASH GENERALISED
  5. METARAMINOL [Suspect]
     Active Substance: METARAMINOL
     Indication: RASH GENERALISED
  6. NITROGLYCERIN. [Concomitant]
     Active Substance: NITROGLYCERIN
     Indication: ARTERIOSPASM CORONARY
     Dosage: UNK

REACTIONS (2)
  - Post procedural haemorrhage [Recovered/Resolved]
  - Cardiac arrest [Recovered/Resolved]
